FAERS Safety Report 6103214-8 (Version None)
Quarter: 2009Q1

REPORT INFORMATION
  Report Type: 
  Country: None (occurrence: None)
  Receive Date: 20090302
  Receipt Date: 20090220
  Transmission Date: 20090719
  Serious: Yes (Death)
  Sender: FDA-Public Use
  Company Number: 2009US000505

PATIENT
  Sex: 0

DRUGS (4)
  1. PROGRAF [Suspect]
     Indication: RENAL TRANSPLANT
     Dosage: 0.2 MG/KG, UID/QD, ORAL
     Route: 048
  2. SIROLIMUS(SIROLIMUS) [Suspect]
     Indication: RENAL TRANSPLANT
     Dosage: 10 MG, UID/QD; 25 MG, UID/QD
  3. PREDNISONE TAB [Suspect]
     Indication: RENAL TRANSPLANT
     Dosage: 5 MG, UID/QD
  4. PNEUMOCOCCAL VACCINE (PNEUMOCOCCAL VACCINE) [Concomitant]

REACTIONS (1)
  - PULMONARY EMBOLISM [None]
